FAERS Safety Report 7927282-3 (Version None)
Quarter: 2011Q4

REPORT INFORMATION
  Report Type: 
  Country: None (occurrence: None)
  Receive Date: 20111118
  Receipt Date: 20111107
  Transmission Date: 20120403
  Serious: Yes (Other)
  Sender: FDA-Public Use
  Company Number: PHFR2011GB006396

PATIENT
  Sex: Male

DRUGS (3)
  1. TEGRETOL [Suspect]
  2. TEGRETOL [Suspect]
     Dosage: 600 MG, DAILY
  3. TEGRETOL [Suspect]
     Dosage: 400 MG, DAILY

REACTIONS (1)
  - CONVULSION [None]
